FAERS Safety Report 6500111-0 (Version None)
Quarter: 2009Q4

REPORT INFORMATION
  Report Type: 
  Country: None (occurrence: None)
  Receive Date: 20091216
  Receipt Date: 20091211
  Transmission Date: 20100525
  Serious: Yes (Death)
  Sender: FDA-Public Use
  Company Number: ES-JNJFOC-20090305189

PATIENT
  Sex: Female

DRUGS (9)
  1. REMICADE [Suspect]
     Route: 042
  2. REMICADE [Suspect]
     Indication: DRUG USE FOR UNKNOWN INDICATION
     Route: 042
  3. STEROID [Concomitant]
     Route: 042
  4. METHOTREXATE [Concomitant]
  5. NSAID [Concomitant]
  6. FOLIC ACID [Concomitant]
  7. OMEPRAZOLE [Concomitant]
  8. BENZODIAZEPINES [Concomitant]
  9. ANTIDEPRESSANT [Concomitant]

REACTIONS (2)
  - CEREBRAL INFARCTION [None]
  - METASTATIC NEOPLASM [None]
